FAERS Safety Report 6283917-5 (Version None)
Quarter: 2009Q3

REPORT INFORMATION
  Report Type: 
  Country: None (occurrence: None)
  Receive Date: 20090722
  Receipt Date: 20090722
  Transmission Date: 20100115
  Serious: No
  Sender: FDA-Public Use
  Company Number: None

PATIENT
  Age: 12 Year
  Sex: Male
  Weight: 59.8748 kg

DRUGS (2)
  1. XOLAIR [Suspect]
     Indication: ASTHMA
     Dosage: EVERT TWO WEEKS
     Dates: start: 20090612, end: 20090717
  2. XOLAIR [Suspect]
     Indication: HYPERSENSITIVITY
     Dosage: EVERT TWO WEEKS
     Dates: start: 20090612, end: 20090717

REACTIONS (2)
  - ABDOMINAL DISCOMFORT [None]
  - HYPOPHAGIA [None]
